FAERS Safety Report 14283353 (Version 1)
Quarter: 2017Q4

REPORT INFORMATION
  Report Type: Spontaneous
  Country: US (occurrence: None)
  Receive Date: 20171213
  Receipt Date: 20171213
  Transmission Date: 20180321
  Serious: Yes (Life-Threatening, Disabling)
  Sender: FDA-Public Use
  Company Number: None

PATIENT
  Age: 83 Year
  Sex: Female
  Weight: 58.97 kg

DRUGS (21)
  1. LASIX [Concomitant]
     Active Substance: FUROSEMIDE
  2. NITROGLYCERIN. [Concomitant]
     Active Substance: NITROGLYCERIN
  3. TEMAZEPAM. [Concomitant]
     Active Substance: TEMAZEPAM
  4. BIOTIN [Concomitant]
     Active Substance: BIOTIN
  5. SUPER BIOTIC B COMPLEX [Concomitant]
  6. VITAMIN D3 [Concomitant]
     Active Substance: CHOLECALCIFEROL
  7. ASPIRIN. [Concomitant]
     Active Substance: ASPIRIN
  8. FML [Concomitant]
     Active Substance: FLUOROMETHOLONE
  9. EYE DROPS [Concomitant]
     Active Substance: UNSPECIFIED INGREDIENT
  10. FAMOTIDINE. [Concomitant]
     Active Substance: FAMOTIDINE
  11. COQ10 [Concomitant]
     Active Substance: UBIDECARENONE
  12. ARCTIC COD LIVER OIL [Concomitant]
  13. GR 8 DOPHILUS COMPLEX - PROBIOTIC [Concomitant]
  14. HORSE CHESTNUT EXTRACT [Concomitant]
     Active Substance: HORSE CHESTNUT
  15. POTASSIUM CL (KDUR) [Concomitant]
  16. ATENOLOL. [Concomitant]
     Active Substance: ATENOLOL
  17. CURCUMIN + BIOPERIN [Concomitant]
  18. SALICYLIC ACID. [Suspect]
     Active Substance: SALICYLIC ACID
     Indication: DRY SKIN
     Dosage: DOSE - APPLY TO AFFECTED AREA (I USED IN VERY THIN FILM)?ROUTE - ON SKIN ON FRONT OF SHINS?FREQUENCY - 2 X EVERY DAY
     Route: 061
     Dates: start: 20150529, end: 20170620
  19. CALCIUM MINERAL IRON FREE-COMPLEX [Concomitant]
  20. RED YEAST RICE [Concomitant]
     Active Substance: DIETARY SUPPLEMENT
  21. MSM/GLUCOSAMINE [Concomitant]

REACTIONS (16)
  - Death of relative [None]
  - Loss of consciousness [None]
  - Asthenia [None]
  - Heart rate abnormal [None]
  - Neoplasm malignant [None]
  - Feeling hot [None]
  - Disturbance in attention [None]
  - Feeling abnormal [None]
  - Blood pressure abnormal [None]
  - Phaeochromocytoma [None]
  - Deafness [None]
  - Condition aggravated [None]
  - Intracranial pressure increased [None]
  - Movement disorder [None]
  - Spinal disorder [None]
  - Brain oedema [None]
